FAERS Safety Report 8142877-2 (Version None)
Quarter: 2012Q1

REPORT INFORMATION
  Report Type: 
  Country: None (occurrence: None)
  Receive Date: 20120217
  Receipt Date: 20120215
  Transmission Date: 20120608
  Serious: Yes (Death)
  Sender: FDA-Public Use
  Company Number: US-BRISTOL-MYERS SQUIBB COMPANY-16401002

PATIENT
  Age: 28 Year
  Sex: Female

DRUGS (2)
  1. ORENCIA [Suspect]
     Route: 058
     Dates: start: 20111101, end: 20120201
  2. METHOTREXATE [Concomitant]

REACTIONS (1)
  - SEPTIC SHOCK [None]
